FAERS Safety Report 9567459 (Version 1)
Quarter: 2013Q3

REPORT INFORMATION
  Report Type: Spontaneous
  Country: US (occurrence: US)
  Receive Date: 20130930
  Receipt Date: 20130930
  Transmission Date: 20140515
  Serious: No
  Sender: FDA-Public Use
  Company Number: US-AMGEN-USASP2012073367

PATIENT
  Age: 58 Year
  Sex: Female
  Weight: 84.35 kg

DRUGS (23)
  1. ENBREL [Suspect]
     Indication: PSORIASIS
     Dosage: UNK
     Dates: start: 2006, end: 2006
  2. ENBREL [Suspect]
     Indication: PSORIATIC ARTHROPATHY
  3. AMARYL [Concomitant]
     Dosage: UNK
  4. ATENOLOL [Concomitant]
     Dosage: UNK
  5. CALCIUM [Concomitant]
     Dosage: UNK
  6. CRANBERRY                          /01512301/ [Concomitant]
     Dosage: UNK
  7. GLUCOPHAGE [Concomitant]
     Dosage: UNK
  8. HUMULIN [Concomitant]
     Dosage: UNK
  9. VICODIN [Concomitant]
     Dosage: UNK
  10. IRON [Concomitant]
     Dosage: UNK
  11. KLONOPIN [Concomitant]
     Dosage: UNK
  12. LEVEMIR [Concomitant]
     Dosage: UNK
  13. LOVAZA [Concomitant]
     Dosage: UNK
  14. MOBIC [Concomitant]
     Dosage: UNK
  15. MULTIVITAMINS, PLAIN [Concomitant]
     Dosage: UNK
  16. NOVOLOG [Concomitant]
     Dosage: UNK
  17. PROTONIX [Concomitant]
     Dosage: UNK
  18. SYNTHROID [Concomitant]
     Dosage: UNK
  19. ULTRAM [Concomitant]
     Dosage: UNK
  20. VITAMIN B12                        /00056201/ [Concomitant]
     Dosage: UNK
  21. VITAMIN D                          /00107901/ [Concomitant]
     Dosage: UNK
  22. ZOCOR [Concomitant]
     Dosage: UNK
  23. HUMIRA [Concomitant]
     Dosage: UNK

REACTIONS (1)
  - Drug ineffective [Unknown]
